FAERS Safety Report 4330176-6 (Version None)
Quarter: 2004Q1

REPORT INFORMATION
  Report Type: 
  Country: None (occurrence: None)
  Receive Date: 20040329
  Receipt Date: 20040312
  Transmission Date: 20041129
  Serious: Yes (Hospitalization)
  Sender: FDA-Public Use
  Company Number: 2001AP02599

PATIENT
  Age: 52 Year
  Sex: Female

DRUGS (3)
  1. ARIMIDEX [Suspect]
     Indication: BREAST CANCER
     Dosage: 1 MG DAILY PO
     Route: 048
     Dates: start: 19980528
  2. CIPRAMIL [Concomitant]
  3. CO-DYDRAMOL [Concomitant]

REACTIONS (2)
  - CONDITION AGGRAVATED [None]
  - ERYTHROMELALGIA [None]
